FAERS Safety Report 19984014 (Version 1)
Quarter: 2021Q4

REPORT INFORMATION
  Report Type: Spontaneous
  Country: CA (occurrence: CA)
  Receive Date: 20211021
  Receipt Date: 20211021
  Transmission Date: 20220303
  Serious: Yes (Other)
  Sender: FDA-Public Use
  Company Number: CA-TEVA-2021-CA-1967404

PATIENT
  Age: 27 Year
  Sex: Female

DRUGS (1)
  1. SEASONALE [Suspect]
     Active Substance: ETHINYL ESTRADIOL\LEVONORGESTREL
     Indication: Contraception
     Route: 048

REACTIONS (1)
  - Hepatic adenoma [Recovered/Resolved with Sequelae]
